FAERS Safety Report 11167467 (Version 2)
Quarter: 2015Q3

REPORT INFORMATION
  Report Type: Spontaneous
  Country: US (occurrence: US)
  Receive Date: 20150605
  Receipt Date: 20150818
  Transmission Date: 20151125
  Serious: Yes (Hospitalization)
  Sender: FDA-Public Use
  Company Number: US-PFIZER INC-2015188475

PATIENT
  Age: 70 Year
  Sex: Male
  Weight: 100 kg

DRUGS (4)
  1. CARVEDILOL. [Concomitant]
     Active Substance: CARVEDILOL
     Dosage: UNK
  2. LISINOPRIL. [Concomitant]
     Active Substance: LISINOPRIL
     Dosage: UNK
  3. XARELTO [Concomitant]
     Active Substance: RIVAROXABAN
     Dosage: 20 MG, 1X/DAY
  4. TIKOSYN [Suspect]
     Active Substance: DOFETILIDE
     Indication: ARRHYTHMIA
     Dosage: 250 ?G, 2X/DAY

REACTIONS (5)
  - Urinary tract infection [Unknown]
  - Joint dislocation [Recovered/Resolved]
  - Post procedural infection [Recovered/Resolved]
  - Blood disorder [Unknown]
  - Arthropathy [Recovered/Resolved]

NARRATIVE: CASE EVENT DATE: 20150301
